APPROVED DRUG PRODUCT: NYSTATIN AND TRIAMCINOLONE ACETONIDE
Active Ingredient: NYSTATIN; TRIAMCINOLONE ACETONIDE
Strength: 100,000 UNITS/GM;0.1%
Dosage Form/Route: OINTMENT;TOPICAL
Application: A207764 | Product #001 | TE Code: AT
Applicant: ZYDUS LIFESCIENCES LTD
Approved: Nov 8, 2018 | RLD: No | RS: No | Type: RX